FAERS Safety Report 10398996 (Version 1)
Quarter: 2014Q3

REPORT INFORMATION
  Report Type: Spontaneous
  Country: FR (occurrence: None)
  Receive Date: 20140818
  Receipt Date: 20140818
  Transmission Date: 20150326
  Serious: Yes (Death)
  Sender: FDA-Public Use
  Company Number: 2014FR0342

PATIENT
  Age: 84 Year
  Sex: Female

DRUGS (2)
  1. METOJECT (METHOTREXATE SODIUM) [Concomitant]
     Active Substance: METHOTREXATE SODIUM
  2. KINERET [Suspect]
     Active Substance: ANAKINRA
     Route: 058
     Dates: end: 201405

REACTIONS (5)
  - Brain herniation [None]
  - Asthenia [None]
  - Drug ineffective [None]
  - VIIth nerve paralysis [None]
  - Glioma [None]

NARRATIVE: CASE EVENT DATE: 201405
